FAERS Safety Report 18504581 (Version 1)
Quarter: 2020Q4

REPORT INFORMATION
  Report Type: Report from Study
  Country: IL (occurrence: IL)
  Receive Date: 20201114
  Receipt Date: 20201114
  Transmission Date: 20210114
  Serious: Yes (Other)
  Sender: FDA-Public Use
  Company Number: IL-AMGEN-ISRSL2020181945

PATIENT
  Age: 89 Year
  Sex: Female

DRUGS (1)
  1. PROLIA [Suspect]
     Active Substance: DENOSUMAB
     Indication: OSTEOPOROSIS
     Dosage: UNK,
     Route: 065
     Dates: start: 20181113, end: 2020

REACTIONS (2)
  - Jaw operation [Unknown]
  - Tooth loss [Unknown]

NARRATIVE: CASE EVENT DATE: 202007
